FAERS Safety Report 9519632 (Version 2)
Quarter: 2013Q3

REPORT INFORMATION
  Report Type: Report from Study
  Country: ZA (occurrence: ZA)
  Receive Date: 20130912
  Receipt Date: 20130912
  Transmission Date: 20140515
  Serious: Yes (Life-Threatening)
  Sender: FDA-Public Use
  Company Number: PHHO2008ZA07281

PATIENT
  Age: 56 Year
  Sex: Female
  Weight: 91.7 kg

DRUGS (1)
  1. ALISKIREN [Suspect]
     Indication: CARDIOVASCULAR DISORDER
     Route: 048
     Dates: start: 20080410, end: 20080530

REACTIONS (1)
  - Blood creatinine increased [Recovering/Resolving]
